FAERS Safety Report 14108211 (Version 3)
Quarter: 2018Q1

REPORT INFORMATION
  Report Type: Spontaneous
  Country: IT (occurrence: IT)
  Receive Date: 20171019
  Receipt Date: 20180205
  Transmission Date: 20180508
  Serious: Yes (Congenital Anomaly)
  Sender: FDA-Public Use
  Company Number: IT-SA-2017SA198802

PATIENT
  Age: 1 Day
  Sex: Female
  Weight: 3.18 kg

DRUGS (2)
  1. NOVORAPID [Suspect]
     Active Substance: INSULIN ASPART
     Indication: FOETAL EXPOSURE TIMING UNSPECIFIED
     Dosage: DOSE:75 UNIT(S)
     Route: 064
     Dates: start: 20170515
  2. LANTUS [Suspect]
     Active Substance: INSULIN GLARGINE
     Indication: FOETAL EXPOSURE TIMING UNSPECIFIED
     Dosage: DOSE:56 UNIT(S)
     Route: 064
     Dates: start: 20170515

REACTIONS (2)
  - Congenital anomaly [Unknown]
  - Foetal exposure during pregnancy [Unknown]

NARRATIVE: CASE EVENT DATE: 20170524
